FAERS Safety Report 5220211-5 (Version None)
Quarter: 2007Q1

REPORT INFORMATION
  Report Type: 
  Country: None (occurrence: None)
  Receive Date: 20061201
  Receipt Date: 20060906
  Transmission Date: 20070707
  Serious: Yes (Other)
  Sender: FDA-Public Use
  Company Number: PHEH2006US06564

PATIENT
  Age: 52 Year
  Sex: Female
  Weight: 89.8 kg

DRUGS (2)
  1. LAMISIL [Suspect]
     Dosage: ORAL
     Route: 048
  2. PREMPRO [Concomitant]

REACTIONS (6)
  - FACE OEDEMA [None]
  - PAIN [None]
  - PERIORBITAL OEDEMA [None]
  - PRURITUS [None]
  - SWELLING FACE [None]
  - URTICARIA [None]
